FAERS Safety Report 6076033-9 (Version None)
Quarter: 2009Q1

REPORT INFORMATION
  Report Type: 
  Country: None (occurrence: None)
  Receive Date: 20090212
  Receipt Date: 20090210
  Transmission Date: 20090719
  Serious: Yes (Hospitalization)
  Sender: FDA-Public Use
  Company Number: DE-BAYER-200910892GPV

PATIENT
  Age: 68 Year
  Sex: Female

DRUGS (6)
  1. ASPIRIN [Suspect]
     Indication: PLATELET AGGREGATION INHIBITION
     Route: 048
  2. CONCOR 5 / BISOPROLOL [Concomitant]
     Indication: DRUG USE FOR UNKNOWN INDICATION
  3. CONCOR 5 PLUS / BISOPROLOL+HYDROCHLOROTHIACIDE [Concomitant]
     Indication: DRUG USE FOR UNKNOWN INDICATION
  4. PENTALONG / PENTAERYTHRITYL TETRANITRATE [Concomitant]
     Indication: DRUG USE FOR UNKNOWN INDICATION
  5. L-THYROXIN / LEVOTHYROXIN [Concomitant]
     Indication: DRUG USE FOR UNKNOWN INDICATION
  6. SORTIS 20 / ATORVASTATIN [Concomitant]
     Indication: DRUG USE FOR UNKNOWN INDICATION

REACTIONS (5)
  - ABDOMINAL DISCOMFORT [None]
  - ABDOMINAL PAIN UPPER [None]
  - DIARRHOEA [None]
  - GASTRITIS HAEMORRHAGIC [None]
  - GASTROINTESTINAL PAIN [None]
